FAERS Safety Report 8021724-3 (Version None)
Quarter: 2012Q1

REPORT INFORMATION
  Report Type: 
  Country: None (occurrence: None)
  Receive Date: 20120104
  Receipt Date: 20111223
  Transmission Date: 20120608
  Serious: Yes (Other)
  Sender: FDA-Public Use
  Company Number: US-SANOFI-AVENTIS-2011SA084856

PATIENT
  Age: 59 Year
  Sex: Female

DRUGS (2)
  1. FEXOFENADINE HYDROCHLORIDE [Suspect]
     Route: 048
  2. FEXOFENADINE HYDROCHLORIDE [Suspect]
     Route: 048
     Dates: start: 20111218, end: 20111222

REACTIONS (7)
  - LIP SWELLING [None]
  - ANGIOEDEMA [None]
  - SWELLING FACE [None]
  - ANAPHYLACTIC REACTION [None]
  - PRURITUS [None]
  - URTICARIA [None]
  - SWOLLEN TONGUE [None]
